FAERS Safety Report 8419365-9 (Version None)
Quarter: 2012Q2

REPORT INFORMATION
  Report Type: 
  Country: None (occurrence: None)
  Receive Date: 20120607
  Receipt Date: 20120601
  Transmission Date: 20120825
  Serious: Yes (Hospitalization, Other)
  Sender: FDA-Public Use
  Company Number: CA-PFIZER INC-2012043551

PATIENT
  Age: 56 Year
  Sex: Female

DRUGS (1)
  1. AROMASIN [Suspect]
     Indication: BREAST CANCER
     Dosage: DAILY
     Dates: start: 20100101, end: 20120101

REACTIONS (9)
  - MUSCLE SPASMS [None]
  - BRAIN NEOPLASM [None]
  - EAR PRURITUS [None]
  - MUSCULAR WEAKNESS [None]
  - CONVULSION [None]
  - CEREBROVASCULAR ACCIDENT [None]
  - HEADACHE [None]
  - HYPOAESTHESIA [None]
  - TREMOR [None]
